FAERS Safety Report 22947325 (Version 2)
Quarter: 2024Q1

REPORT INFORMATION
  Report Type: Spontaneous
  Country: US (occurrence: None)
  Receive Date: 20230915
  Receipt Date: 20240320
  Transmission Date: 20240409
  Serious: Yes (Other)
  Sender: FDA-Public Use
  Company Number: US-ROCHE-3386186

PATIENT
  Age: 72 Year
  Sex: Male

DRUGS (7)
  1. VABYSMO [Suspect]
     Active Substance: FARICIMAB\FARICIMAB-SVOA
     Indication: Diabetic retinal oedema
     Route: 065
  2. VABYSMO [Suspect]
     Active Substance: FARICIMAB\FARICIMAB-SVOA
  3. PLAVIX [Concomitant]
     Active Substance: CLOPIDOGREL BISULFATE
  4. METOPROLOL [Concomitant]
     Active Substance: METOPROLOL
  5. GABAPENTIN [Concomitant]
     Active Substance: GABAPENTIN
  6. ASPIRIN [Concomitant]
     Active Substance: ASPIRIN
  7. TRAZODONE [Concomitant]
     Active Substance: TRAZODONE HYDROCHLORIDE

REACTIONS (2)
  - Non-infectious endophthalmitis [Unknown]
  - Product quality issue [Unknown]
